FAERS Safety Report 26025722 (Version 2)
Quarter: 2025Q4

REPORT INFORMATION
  Report Type: Report from Study
  Country: JP (occurrence: JP)
  Receive Date: 20251111
  Receipt Date: 20251127
  Transmission Date: 20260117
  Serious: Yes (Other)
  Sender: RADIUS PHARM
  Company Number: JP-RADIUS HEALTH INC.-JP-RADIUS-25056648

PATIENT
  Age: 53 Year
  Sex: Female

DRUGS (1)
  1. ABALOPARATIDE [Suspect]
     Active Substance: ABALOPARATIDE
     Indication: Product used for unknown indication
     Dosage: 80 MICROGRAM, QD
     Route: 058
     Dates: start: 20251023

REACTIONS (2)
  - Cholangitis [Unknown]
  - Malaise [Recovering/Resolving]

NARRATIVE: CASE EVENT DATE: 20250101
